FAERS Safety Report 25497217 (Version 2)
Quarter: 2025Q3

REPORT INFORMATION
  Report Type: Spontaneous
  Country: US (occurrence: US)
  Receive Date: 20250701
  Receipt Date: 20250810
  Transmission Date: 20251020
  Serious: Yes (Other)
  Sender: BAUSCH AND LOMB
  Company Number: US-BAUSCHBL-2025BNL010829

PATIENT
  Age: 81 Year
  Sex: Female
  Weight: 57 kg

DRUGS (2)
  1. MIEBO [Suspect]
     Active Substance: PERFLUOROHEXYLOCTANE
     Indication: Dry eye
     Route: 047
  2. MIEBO [Suspect]
     Active Substance: PERFLUOROHEXYLOCTANE
     Route: 047

REACTIONS (14)
  - Glaucoma [Unknown]
  - Blindness [Unknown]
  - Product delivery mechanism issue [Unknown]
  - Exposure via skin contact [Unknown]
  - Accidental exposure to product [Unknown]
  - Circumstance or information capable of leading to medication error [Unknown]
  - Product storage error [Unknown]
  - Poor quality product administered [Unknown]
  - Product knowledge deficit [Unknown]
  - Product use complaint [Unknown]
  - Product container issue [Unknown]
  - Intentional product use issue [Unknown]
  - No adverse event [Unknown]
  - Inappropriate schedule of product administration [Unknown]
